FAERS Safety Report 21675593 (Version 3)
Quarter: 2023Q4

REPORT INFORMATION
  Report Type: Spontaneous
  Country: US (occurrence: US)
  Receive Date: 20221202
  Receipt Date: 20231222
  Transmission Date: 20240109
  Serious: Yes (Other)
  Sender: FDA-Public Use
  Company Number: US-ARBOR PHARMACEUTICALS, LLC-US-2022ARB001049

PATIENT
  Age: 38 Year
  Sex: Male

DRUGS (5)
  1. ZENZEDI [Suspect]
     Active Substance: DEXTROAMPHETAMINE SULFATE
     Indication: Product used for unknown indication
     Dosage: UNK
  2. ZENZEDI [Suspect]
     Active Substance: DEXTROAMPHETAMINE SULFATE
     Dosage: 15 MILLIGRAM
  3. ZENZEDI [Suspect]
     Active Substance: DEXTROAMPHETAMINE SULFATE
     Dosage: 10 MILLIGRAM
  4. ZENZEDI [Suspect]
     Active Substance: DEXTROAMPHETAMINE SULFATE
     Dosage: 20 MILLIGRAM
  5. ZENZEDI [Suspect]
     Active Substance: DEXTROAMPHETAMINE SULFATE
     Dosage: UNK (10 MG)

REACTIONS (8)
  - Attention deficit hyperactivity disorder [Not Recovered/Not Resolved]
  - Psychotic disorder [Not Recovered/Not Resolved]
  - Sleep disorder [Unknown]
  - Ill-defined disorder [Not Recovered/Not Resolved]
  - Product dose omission issue [Unknown]
  - Intentional product misuse [Unknown]
  - Product supply issue [Unknown]
  - Product substitution issue [Unknown]

NARRATIVE: CASE EVENT DATE: 20230901
